FAERS Safety Report 17256138 (Version 1)
Quarter: 2020Q1

REPORT INFORMATION
  Report Type: Spontaneous
  Country: CN (occurrence: CN)
  Receive Date: 20200110
  Receipt Date: 20200110
  Transmission Date: 20200409
  Serious: Yes (Other)
  Sender: FDA-Public Use
  Company Number: CN-BAXTER-2020BAX000338

PATIENT
  Age: 2 Day
  Sex: Male
  Weight: 2.25 kg

DRUGS (1)
  1. 20% MANNITOL INJECTION [Suspect]
     Active Substance: MANNITOL
     Indication: REDUCTION OF INCREASED INTRACRANIAL PRESSURE
     Route: 042
     Dates: start: 20191222, end: 20191224

REACTIONS (7)
  - Acute kidney injury [Unknown]
  - Condition aggravated [Unknown]
  - Hypoxic-ischaemic encephalopathy [Unknown]
  - Neonatal asphyxia [Unknown]
  - Neonatal respiratory failure [Unknown]
  - Encephalopathy neonatal [Unknown]
  - Neonatal pneumonia [Unknown]

NARRATIVE: CASE EVENT DATE: 20191223
